FAERS Safety Report 22198099 (Version 1)
Quarter: 2023Q2

REPORT INFORMATION
  Report Type: Spontaneous
  Country: RU (occurrence: RU)
  Receive Date: 20230411
  Receipt Date: 20230411
  Transmission Date: 20230721
  Serious: Yes (Other)
  Sender: FDA-Public Use
  Company Number: RU-TAKEDA-2023TUS035822

PATIENT
  Age: 58 Year
  Sex: Female
  Weight: 75 kg

DRUGS (1)
  1. MESALAMINE [Suspect]
     Active Substance: MESALAMINE
     Indication: Colitis ulcerative
     Dosage: 2.4 GRAM, BID
     Route: 048
     Dates: start: 20221229, end: 20230128

REACTIONS (18)
  - Rhinorrhoea [Unknown]
  - Laryngeal oedema [Unknown]
  - Diarrhoea [Recovered/Resolved]
  - Pyrexia [Recovered/Resolved]
  - Muscular weakness [Unknown]
  - Visual impairment [Unknown]
  - Spinal pain [Unknown]
  - Cerebral vasoconstriction [Unknown]
  - Blood pressure abnormal [Unknown]
  - Thirst [Unknown]
  - Irritability [Unknown]
  - Chills [Unknown]
  - Palpitations [Unknown]
  - Peripheral coldness [Unknown]
  - Blood pressure decreased [Unknown]
  - Tachycardia [Unknown]
  - Flatulence [Unknown]
  - Tinnitus [Unknown]

NARRATIVE: CASE EVENT DATE: 20221229
